FAERS Safety Report 26161328 (Version 1)
Quarter: 2025Q4

REPORT INFORMATION
  Report Type: Spontaneous
  Country: US (occurrence: US)
  Receive Date: 20251216
  Receipt Date: 20251216
  Transmission Date: 20260117
  Serious: Yes (Death, Hospitalization)
  Sender: BAXTER
  Company Number: US-MLMSERVICE-20251203-PI736976-00082-2

PATIENT
  Age: 75 Year
  Sex: Female

DRUGS (5)
  1. IFOSFAMIDE [Suspect]
     Active Substance: IFOSFAMIDE
     Indication: Atypical teratoid/rhabdoid tumour of CNS
     Dosage: 10% DOSE REDUCTION IN IFOSFAMIDE DUE TO BASELINE RENAL DYSFUNCTION; RECEIVED 1 CYCLE
     Route: 065
  2. CARBOPLATIN [Suspect]
     Active Substance: CARBOPLATIN
     Indication: Atypical teratoid/rhabdoid tumour of CNS
     Dosage: STANDARD DOSES; RECEIVED 1 CYCLE
     Route: 065
  3. ETOPOSIDE [Suspect]
     Active Substance: ETOPOSIDE
     Indication: Atypical teratoid/rhabdoid tumour of CNS
     Dosage: STANDARD DOSES; RECEIVED 1 CYCLE
     Route: 065
  4. DEXAMETHASONE [Concomitant]
     Active Substance: DEXAMETHASONE
     Indication: Headache
     Dosage: UNK
     Route: 065
  5. PEGFILGRASTIM [Concomitant]
     Active Substance: PEGFILGRASTIM
     Indication: Prophylaxis
     Dosage: UNK
     Route: 065

REACTIONS (10)
  - Toxicity to various agents [Fatal]
  - Metabolic disorder [Fatal]
  - Hyperglycaemia [Fatal]
  - Acute kidney injury [Fatal]
  - Pancytopenia [Fatal]
  - Leukopenia [Fatal]
  - Thrombocytopenia [Fatal]
  - Myelosuppression [Fatal]
  - Condition aggravated [Fatal]
  - Intensive care unit acquired weakness [Unknown]
